FAERS Safety Report 4535332-X (Version None)
Quarter: 2004Q4

REPORT INFORMATION
  Report Type: 
  Country: None (occurrence: None)
  Receive Date: 20041214
  Receipt Date: 20041115
  Transmission Date: 20050328
  Serious: Yes (Hospitalization, Other)
  Sender: FDA-Public Use
  Company Number: 2004094048

PATIENT
  Sex: Female
  Weight: 54.4316 kg

DRUGS (2)
  1. BEXTRA [Suspect]
     Indication: HIP FRACTURE
     Dosage: 10 MG (10 MG, 1 IN 1 D), ORAL
     Route: 048
     Dates: start: 20030101, end: 20031221
  2. VERAPAMIL [Concomitant]

REACTIONS (2)
  - HEART RATE INCREASED [None]
  - THROMBOSIS [None]
